FAERS Safety Report 8518971-0 (Version None)
Quarter: 2012Q3

REPORT INFORMATION
  Report Type: 
  Country: None (occurrence: None)
  Receive Date: 20120718
  Receipt Date: 20120712
  Transmission Date: 20120928
  Serious: Yes (Hospitalization)
  Sender: FDA-Public Use
  Company Number: CN-GLAXOSMITHKLINE-B0815302A

PATIENT
  Age: 54 Year
  Sex: Female

DRUGS (1)
  1. LAMIVUDINE [Suspect]
     Indication: HEPATITIS B
     Dosage: 100MG PER DAY
     Route: 048
     Dates: start: 20100801, end: 20120201

REACTIONS (4)
  - LYMPHADENITIS [None]
  - NEURALGIA [None]
  - PLATELET COUNT DECREASED [None]
  - AMYOTROPHY [None]
